FAERS Safety Report 5574542-X (Version None)
Quarter: 2007Q4

REPORT INFORMATION
  Report Type: 
  Country: None (occurrence: None)
  Receive Date: 20071227
  Receipt Date: 20071214
  Transmission Date: 20080405
  Serious: Yes (Hospitalization)
  Sender: FDA-Public Use
  Company Number: IT-TEVA-165361ISR

PATIENT
  Sex: Female

DRUGS (2)
  1. CEFTRIAXONE [Suspect]
     Indication: BRONCHITIS
     Route: 042
     Dates: start: 20071128
  2. SINTAMIN [Concomitant]
     Route: 042

REACTIONS (2)
  - DERMATITIS EXFOLIATIVE [None]
  - ERYTHEMA [None]
